FAERS Safety Report 7456835-4 (Version None)
Quarter: 2011Q2

REPORT INFORMATION
  Report Type: 
  Country: None (occurrence: None)
  Receive Date: 20110504
  Receipt Date: 20110426
  Transmission Date: 20111010
  Serious: No
  Sender: FDA-Public Use
  Company Number: US-BIOGENIDEC-2010BI031210

PATIENT
  Sex: Female

DRUGS (1)
  1. TYSABRI [Suspect]
     Indication: MULTIPLE SCLEROSIS
     Route: 042
     Dates: start: 20090123

REACTIONS (5)
  - OBSESSIVE-COMPULSIVE DISORDER [None]
  - OBSESSIVE THOUGHTS [None]
  - FEELING COLD [None]
  - URINARY INCONTINENCE [None]
  - ENURESIS [None]
